FAERS Safety Report 6812222-0 (Version None)
Quarter: 2010Q3

REPORT INFORMATION
  Report Type: 
  Country: None (occurrence: None)
  Receive Date: 20100701
  Receipt Date: 20100621
  Transmission Date: 20110219
  Serious: Yes (Other)
  Sender: FDA-Public Use
  Company Number: US-WYE-H15782810

PATIENT
  Sex: Female
  Weight: 65.83 kg

DRUGS (4)
  1. PRISTIQ [Suspect]
     Indication: DEPRESSION
     Route: 048
     Dates: start: 20100601
  2. PRISTIQ [Suspect]
     Indication: ANXIETY
  3. PREVACID [Concomitant]
     Dosage: UNKNOWN
  4. LIPITOR [Concomitant]
     Indication: BLOOD CHOLESTEROL INCREASED
     Dosage: UNKNOWN

REACTIONS (4)
  - ANXIETY [None]
  - INSOMNIA [None]
  - SUICIDAL IDEATION [None]
  - TREMOR [None]
